FAERS Safety Report 13778768 (Version 6)
Quarter: 2019Q3

REPORT INFORMATION
  Report Type: Report from Study
  Country: BR (occurrence: BR)
  Receive Date: 20170721
  Receipt Date: 20190926
  Transmission Date: 20191004
  Serious: Yes (Life-Threatening, Hospitalization, Other)
  Sender: FDA-Public Use
  Company Number: PHHY2017BR107294

PATIENT
  Sex: Female
  Weight: 58 kg

DRUGS (8)
  1. DORFLEX [Suspect]
     Active Substance: CAFFEINE\DIPYRONE\ORPHENADRINE
     Indication: NECK PAIN
     Route: 065
  2. FORASEQ [Suspect]
     Active Substance: BUDESONIDE\FORMOTEROL FUMARATE
     Dosage: 1 DF (BUDESONIDE 200 UG/ FORMOTEROL FUMARATE 12 UG), BID
     Route: 055
     Dates: end: 20190402
  3. LANSOPRAZOLE. [Concomitant]
     Active Substance: LANSOPRAZOLE
     Indication: PROPHYLAXIS
     Dosage: 20 MG, QD (FOR 5 YEARS)
     Route: 048
  4. TRAMAL [Concomitant]
     Active Substance: TRAMADOL
     Indication: PAIN
     Dosage: 1 DF, PRN (SINCE OCTOBER)
     Route: 048
  5. FORASEQ [Suspect]
     Active Substance: BUDESONIDE\FORMOTEROL FUMARATE
     Indication: ASTHMA
     Dosage: 1 DF (BUDESONIDE 200 UG/ FORMOTEROL FUMARATE 12 UG), BID (MORE THAN THREE YEARS AGO)
     Route: 055
  6. FORASEQ [Suspect]
     Active Substance: BUDESONIDE\FORMOTEROL FUMARATE
     Dosage: 1 DF (BUDESONIDE 200 UG/ FORMOTEROL FUMARATE 12 UG), BID
     Route: 055
  7. NAPRIX [Concomitant]
     Active Substance: RAMIPRIL
     Indication: HYPERTENSION
     Dosage: 1 DF, QD (FOR MANY YEARS)
     Route: 048
  8. FRONTAL [Concomitant]
     Active Substance: ALPRAZOLAM
     Indication: PRODUCT USED FOR UNKNOWN INDICATION
     Route: 065

REACTIONS (23)
  - Neck pain [Not Recovered/Not Resolved]
  - Feeling abnormal [Recovered/Resolved with Sequelae]
  - Depressed mood [Recovering/Resolving]
  - Lip oedema [Recovering/Resolving]
  - Glaucoma [Not Recovered/Not Resolved]
  - Abdominal discomfort [Not Recovered/Not Resolved]
  - Dyspnoea [Recovered/Resolved]
  - Decreased appetite [Not Recovered/Not Resolved]
  - Decreased immune responsiveness [Not Recovered/Not Resolved]
  - Insomnia [Unknown]
  - Malaise [Unknown]
  - Device breakage [Unknown]
  - Ligament sprain [Not Recovered/Not Resolved]
  - Pneumonia [Not Recovered/Not Resolved]
  - Device issue [Unknown]
  - Laryngeal oedema [Recovered/Resolved with Sequelae]
  - Panic attack [Unknown]
  - Wheezing [Unknown]
  - Anaphylactic shock [Not Recovered/Not Resolved]
  - Wrong technique in product usage process [Unknown]
  - Cyanosis [Recovered/Resolved with Sequelae]
  - Cardiac arrest [Not Recovered/Not Resolved]
  - Hypotension [Not Recovered/Not Resolved]
